FAERS Safety Report 25353674 (Version 1)
Quarter: 2025Q2

REPORT INFORMATION
  Report Type: Spontaneous
  Country: US (occurrence: None)
  Receive Date: 20250523
  Receipt Date: 20250523
  Transmission Date: 20250716
  Serious: No
  Sender: FDA-CTU
  Company Number: None

PATIENT
  Age: 63 Year
  Sex: Female
  Weight: 81 kg

DRUGS (19)
  1. RECLAST [Suspect]
     Active Substance: ZOLEDRONIC ACID
     Indication: Osteoporosis
     Route: 058
     Dates: start: 20250520, end: 20250520
  2. SYNTHROID [Concomitant]
     Active Substance: LEVOTHYROXINE SODIUM
  3. HYDROCORTISONE [Concomitant]
     Active Substance: HYDROCORTISONE
  4. TIZANIDINE [Concomitant]
     Active Substance: TIZANIDINE
  5. METFORMIN [Concomitant]
     Active Substance: METFORMIN HYDROCHLORIDE
  6. LOSARTAN [Concomitant]
     Active Substance: LOSARTAN
  7. FAMOTIDINE [Concomitant]
     Active Substance: FAMOTIDINE
  8. ATENOLOL [Concomitant]
     Active Substance: ATENOLOL
  9. ATORVASTATIN [Concomitant]
     Active Substance: ATORVASTATIN
  10. TRESIBA [Concomitant]
     Active Substance: INSULIN DEGLUDEC
  11. LYUMJEV [Concomitant]
     Active Substance: INSULIN LISPRO-AABC
  12. CABERGOLINE [Concomitant]
     Active Substance: CABERGOLINE
  13. NURTEC ODT [Concomitant]
     Active Substance: RIMEGEPANT SULFATE
  14. ZOFRAN [Concomitant]
     Active Substance: ONDANSETRON HYDROCHLORIDE
  15. VITAMIN D [Concomitant]
     Active Substance: VITAMIN D NOS
  16. Super B [Concomitant]
  17. FERROUS SULFATE [Concomitant]
     Active Substance: FERROUS SULFATE
  18. MAGNESIUM GLYCINATE [Concomitant]
     Active Substance: MAGNESIUM GLYCINATE
  19. CLARITIN [Concomitant]
     Active Substance: LORATADINE

REACTIONS (2)
  - Spinal pain [None]
  - Bedridden [None]

NARRATIVE: CASE EVENT DATE: 20250521
